FAERS Safety Report 24464857 (Version 1)
Quarter: 2024Q4

REPORT INFORMATION
  Report Type: Report from Study
  Country: US (occurrence: US)
  Receive Date: 20241018
  Receipt Date: 20241018
  Transmission Date: 20250115
  Serious: No
  Sender: ROCHE
  Company Number: US-ROCHE-3505625

PATIENT
  Age: 41 Year
  Sex: Female
  Weight: 71.67 kg

DRUGS (5)
  1. XOLAIR [Suspect]
     Active Substance: OMALIZUMAB
     Indication: Idiopathic urticaria
     Route: 058
  2. XOLAIR [Suspect]
     Active Substance: OMALIZUMAB
  3. ZYRTEC [Concomitant]
     Active Substance: CETIRIZINE HYDROCHLORIDE
     Dosage: 1 TAB BY MOUTH DAILY
  4. CLARITIN [Concomitant]
     Active Substance: LORATADINE
     Dosage: ORAL DAILY
  5. MONTELUKAST [Concomitant]
     Active Substance: MONTELUKAST
     Dosage: ORAL TAB DAILY AS NEEDED

REACTIONS (2)
  - Pruritus [Unknown]
  - Urticaria [Unknown]
